FAERS Safety Report 7178439-3 (Version None)
Quarter: 2010Q4

REPORT INFORMATION
  Report Type: 
  Country: None (occurrence: None)
  Receive Date: 20101220
  Receipt Date: 20101213
  Transmission Date: 20110411
  Serious: Yes (Other)
  Sender: FDA-Public Use
  Company Number: US-ABBOTT-10P-163-0691380-00

PATIENT
  Sex: Female
  Weight: 82.174 kg

DRUGS (5)
  1. NIASPAN [Suspect]
     Indication: HYPERLIPIDAEMIA
     Dates: start: 20101001, end: 20101126
  2. NIASPAN [Suspect]
     Indication: HIGH DENSITY LIPOPROTEIN DECREASED
  3. BYSTOLIC [Concomitant]
     Indication: HYPERTENSION
  4. HYDROCODONE [Concomitant]
     Indication: PAIN
     Dosage: 5/500
  5. UNKNOWN CHOLESTEROL MEDICINE [Concomitant]
     Indication: BLOOD CHOLESTEROL INCREASED

REACTIONS (5)
  - ABDOMINAL DISCOMFORT [None]
  - BLADDER NEOPLASM [None]
  - FALL [None]
  - FEELING ABNORMAL [None]
  - HAEMORRHAGE URINARY TRACT [None]
